FAERS Safety Report 15288035 (Version 1)
Quarter: 2018Q3

REPORT INFORMATION
  Report Type: Spontaneous
  Country: US (occurrence: US)
  Receive Date: 20180802
  Receipt Date: 20180802
  Transmission Date: 20181010
  Serious: No
  Sender: FDA-Public Use
  Company Number: None

PATIENT
  Sex: Female
  Weight: 80.29 kg

DRUGS (2)
  1. METHOTREXATE 50MG/2ML GENERIC [Suspect]
     Active Substance: METHOTREXATE
     Indication: RHEUMATOID ARTHRITIS
     Route: 058
     Dates: start: 201606
  2. METHOTREXATE 50MG/2ML GENERIC [Suspect]
     Active Substance: METHOTREXATE
     Indication: ANKYLOSING SPONDYLITIS
     Route: 058
     Dates: start: 201606

REACTIONS (2)
  - Drug dose omission [None]
  - Malaise [None]
